FAERS Safety Report 18847319 (Version 1)
Quarter: 2021Q1

REPORT INFORMATION
  Report Type: Report from Study
  Country: US (occurrence: US)
  Receive Date: 20210203
  Receipt Date: 20210203
  Transmission Date: 20210419
  Serious: No
  Sender: FDA-Public Use
  Company Number: US-EXELIXIS-CABO-20032194

PATIENT
  Age: 67 Year
  Sex: Female

DRUGS (2)
  1. CABOMETYX [Suspect]
     Active Substance: CABOZANTINIB S-MALATE
     Indication: SQUAMOUS CELL CARCINOMA OF LUNG
     Dosage: UNK
     Route: 048
  2. CABOMETYX [Suspect]
     Active Substance: CABOZANTINIB S-MALATE
     Indication: LUNG NEOPLASM MALIGNANT
     Dosage: 40 MG QD, 4 DAYS PER WEEK
     Route: 048
     Dates: start: 202006

REACTIONS (11)
  - Alopecia [Unknown]
  - Off label use [Unknown]
  - Sensitive skin [Unknown]
  - Pruritus [Unknown]
  - Vocal cord disorder [Unknown]
  - Muscle spasms [Unknown]
  - Decreased appetite [Unknown]
  - Nausea [Unknown]
  - Hypothyroidism [Unknown]
  - Constipation [Unknown]
  - Inappropriate schedule of product administration [Unknown]

NARRATIVE: CASE EVENT DATE: 202006
